FAERS Safety Report 5384322-6 (Version None)
Quarter: 2007Q3

REPORT INFORMATION
  Report Type: 
  Country: None (occurrence: None)
  Receive Date: 20070710
  Receipt Date: 20060810
  Transmission Date: 20080115
  Serious: Yes (Hospitalization)
  Sender: FDA-Public Use
  Company Number: 2006-01930

PATIENT
  Age: 16 Year
  Sex: Male

DRUGS (14)
  1. VELCADE [Suspect]
     Indication: NON-HODGKIN'S LYMPHOMA
     Dosage: 1.30 MG/M2; 1.00 MG/M2
     Dates: end: 20060701
  2. VELCADE [Suspect]
     Indication: NON-HODGKIN'S LYMPHOMA
     Dosage: 1.30 MG/M2; 1.00 MG/M2
     Dates: start: 20060501
  3. CYCLOSPORINE [Concomitant]
  4. SANDIMMUNE [Concomitant]
  5. SODIUM BICARBONATE IN PLASTIC CONTAINER [Concomitant]
  6. MAGNESIUM OXIDE (MAGNESIUM OXIDE) [Concomitant]
  7. IRON (IRON) [Concomitant]
  8. CALCIUM CARBONATE (CALCIUM CARBONATE) [Concomitant]
  9. ALLOPURINOL [Concomitant]
  10. FOLIC ACID [Concomitant]
  11. PREVACID [Concomitant]
  12. PREDNISONE TAB [Concomitant]
  13. BACTRIM DS [Concomitant]
  14. MULTIVITAMINS (ERGOCALCIFEROL, PANTHENOL, NICOTINAMIDE, RIBOFLAVIN, TH [Concomitant]

REACTIONS (15)
  - AGITATION [None]
  - ANAL FISSURE [None]
  - ASTHENIA [None]
  - CHEST PAIN [None]
  - COUGH [None]
  - DIARRHOEA [None]
  - NASOPHARYNGITIS [None]
  - NECK PAIN [None]
  - OCCULT BLOOD POSITIVE [None]
  - PLEURAL EFFUSION [None]
  - PNEUMONIA [None]
  - PYREXIA [None]
  - RENAL FAILURE [None]
  - TACHYCARDIA [None]
  - THROMBOCYTOPENIA [None]
